FAERS Safety Report 24903050 (Version 1)
Quarter: 2025Q1

REPORT INFORMATION
  Report Type: Spontaneous
  Country: SK (occurrence: SK)
  Receive Date: 20250130
  Receipt Date: 20250130
  Transmission Date: 20250409
  Serious: Yes (Hospitalization)
  Sender: ROCHE
  Company Number: SK-ROCHE-10000085484

PATIENT
  Age: 78 Year
  Sex: Female

DRUGS (7)
  1. VABYSMO [Suspect]
     Active Substance: FARICIMAB-SVOA
     Indication: Neovascular age-related macular degeneration
     Route: 050
     Dates: start: 20240729
  2. UNIDEX [Concomitant]
  3. NEVANAC [Concomitant]
     Active Substance: NEPAFENAC
  4. dexamed [Concomitant]
  5. BROLUCIZUMAB [Concomitant]
     Active Substance: BROLUCIZUMAB
  6. AMLODIPINE [Concomitant]
     Active Substance: AMLODIPINE BESYLATE
  7. concord [Concomitant]

REACTIONS (2)
  - Vitritis [Not Recovered/Not Resolved]
  - Posterior capsule opacification [Not Recovered/Not Resolved]

NARRATIVE: CASE EVENT DATE: 20240901
